FAERS Safety Report 5679452-5 (Version None)
Quarter: 2008Q1

REPORT INFORMATION
  Report Type: 
  Country: None (occurrence: None)
  Receive Date: 20080325
  Receipt Date: 20080321
  Transmission Date: 20080703
  Serious: Yes (Life-Threatening)
  Sender: FDA-Public Use
  Company Number: IT-SANOFI-SYNTHELABO-D01200802187

PATIENT
  Sex: Female
  Weight: 59 kg

DRUGS (18)
  1. POTASSIUM BICARBONATE [Concomitant]
     Dates: end: 20080304
  2. SODIUM ALGINATE [Concomitant]
     Dates: end: 20080304
  3. DEXAMETHASONE SODIUM SULFATE [Concomitant]
     Dates: start: 20080305, end: 20080305
  4. ACETAMINOPHEN [Concomitant]
     Dates: start: 20080306, end: 20080306
  5. PALONOSETRON [Concomitant]
     Dates: start: 20080305
  6. BROTIZOLAM [Concomitant]
     Dates: start: 20080305, end: 20080306
  7. LOPERAMIDE HCL [Concomitant]
     Dates: start: 20080222
  8. LACTULOSE [Concomitant]
     Dates: start: 20080222
  9. OMEPRAZOLE [Concomitant]
     Dates: start: 20080221, end: 20080221
  10. METOCLOPRAMIDE [Concomitant]
     Dates: start: 20080221
  11. LORAZEPAM [Concomitant]
     Dates: start: 20080221
  12. LEUCOVORIN CALCIUM [Suspect]
     Route: 042
     Dates: start: 20080319, end: 20080319
  13. BROMAZEPAM [Concomitant]
     Dates: start: 20080221, end: 20080221
  14. FLUOROURACIL [Suspect]
     Dosage: 400 MG/M?, IV BOLUS D1+D2 FOLLOWED BY 5-FU 2400 MG/M? OVER 46-HOUR CONTINUOUS INFUSION.
     Route: 042
     Dates: start: 20080319, end: 20080319
  15. METHYLPREDNISOLONE [Concomitant]
     Dates: start: 20080220, end: 20080221
  16. OXALIPLATIN [Suspect]
     Route: 042
     Dates: start: 20080319, end: 20080319
  17. ONDANSETRON [Concomitant]
     Dates: start: 20080220, end: 20080221
  18. SR57746 OR PLACEBO [Suspect]
     Indication: NEUROLOGICAL SYMPTOM
     Route: 048
     Dates: start: 20080220, end: 20080319

REACTIONS (1)
  - ANGINA PECTORIS [None]
